FAERS Safety Report 5574726-0 (Version None)
Quarter: 2007Q4

REPORT INFORMATION
  Report Type: 
  Country: None (occurrence: None)
  Receive Date: 20071221
  Receipt Date: 20071221
  Transmission Date: 20080405
  Serious: Yes (Other)
  Sender: FDA-Public Use
  Company Number: None

PATIENT
  Age: 57 Year
  Sex: Female
  Weight: 54.4316 kg

DRUGS (1)
  1. CHANTIX [Suspect]
     Indication: SMOKING CESSATION THERAPY
     Dosage: 2 PILLS PER DAY 2 PILLS PER DAY PO
     Route: 048
     Dates: start: 20061119, end: 20070101

REACTIONS (2)
  - CONDITION AGGRAVATED [None]
  - DEPRESSION [None]
